FAERS Safety Report 9902632 (Version 2)
Quarter: 2014Q1

REPORT INFORMATION
  Report Type: Spontaneous
  Country: DE (occurrence: DE)
  Receive Date: 20140217
  Receipt Date: 20140226
  Transmission Date: 20141002
  Serious: Yes (Life-Threatening, Hospitalization)
  Sender: FDA-Public Use
  Company Number: DE-JNJFOC-20140206827

PATIENT
  Age: 75 Year
  Sex: Female
  Weight: 71 kg

DRUGS (4)
  1. XARELTO [Suspect]
     Indication: CEREBROVASCULAR ACCIDENT PROPHYLAXIS
     Route: 048
     Dates: end: 20140120
  2. XARELTO [Suspect]
     Indication: ATRIAL FIBRILLATION
     Route: 048
     Dates: end: 20140120
  3. RAMIPRIL [Concomitant]
     Indication: HYPERTENSION
     Route: 065
  4. SIMVASTATIN [Concomitant]
     Indication: HYPERLIPIDAEMIA
     Route: 065

REACTIONS (2)
  - Cerebellar haemorrhage [Recovered/Resolved]
  - Brain compression [Recovered/Resolved]
